FAERS Safety Report 8917616 (Version 8)
Quarter: 2014Q3

REPORT INFORMATION
  Report Type: Spontaneous
  Country: US (occurrence: US)
  Receive Date: 20121119
  Receipt Date: 20140822
  Transmission Date: 20150326
  Serious: Yes (Death, Hospitalization, Other)
  Sender: FDA-Public Use
  Company Number: US-009507513-1211USA006390

PATIENT
  Sex: Female
  Weight: 95.24 kg

DRUGS (1)
  1. NUVARING [Suspect]
     Active Substance: ETHINYL ESTRADIOL\ETONOGESTREL
     Indication: CONTRACEPTION
     Dosage: INSERT ONE RING VALINALLY EVERY MONTH
     Route: 067
     Dates: start: 20060208, end: 20110511

REACTIONS (8)
  - Hypertriglyceridaemia [Not Recovered/Not Resolved]
  - Hypothyroidism [Unknown]
  - Cardio-respiratory arrest [Fatal]
  - Hypertension [Unknown]
  - Coagulopathy [Not Recovered/Not Resolved]
  - Cerebrovascular accident [Fatal]
  - Type 2 diabetes mellitus [Fatal]
  - Hypercholesterolaemia [Not Recovered/Not Resolved]

NARRATIVE: CASE EVENT DATE: 20110510
